FAERS Safety Report 11131495 (Version 1)
Quarter: 2015Q2

REPORT INFORMATION
  Report Type: Spontaneous
  Country: US (occurrence: US)
  Receive Date: 20150522
  Receipt Date: 20150522
  Transmission Date: 20150821
  Serious: No
  Sender: FDA-Public Use
  Company Number: US-MALLINCKRODT-QSC-2014-0383

PATIENT
  Age: 43 Year
  Sex: Male

DRUGS (2)
  1. H.P. ACTHAR [Suspect]
     Active Substance: CORTICOTROPIN
     Indication: IGA NEPHROPATHY
     Dosage: 80 UNITS, BIW
     Route: 058
     Dates: start: 20140118
  2. FUROSEMIDE. [Suspect]
     Active Substance: FUROSEMIDE
     Dosage: UNK

REACTIONS (3)
  - Weight decreased [Unknown]
  - Blood cholesterol increased [Unknown]
  - Dysphonia [Unknown]

NARRATIVE: CASE EVENT DATE: 2014
